FAERS Safety Report 9618112 (Version 1)
Quarter: 2013Q4

REPORT INFORMATION
  Report Type: Report from Study
  Country: US (occurrence: US)
  Receive Date: 20131013
  Receipt Date: 20131013
  Transmission Date: 20140711
  Serious: No
  Sender: FDA-Public Use
  Company Number: US-009507513-1310USA004558

PATIENT
  Age: 58 Year
  Sex: Male

DRUGS (11)
  1. VICTRELIS [Suspect]
     Indication: HEPATITIS C
     Dosage: 4 (UNIT NOT REPORTED), 3 IN 1 D
     Dates: start: 20130917, end: 20131003
  2. COPEGUS [Suspect]
     Indication: HEPATITIS C
     Dosage: 3 (UNIT NOT REPORTED), 2 IN 1 D
     Dates: start: 20130705, end: 201308
  3. COPEGUS [Suspect]
     Dosage: 3 (UNIT NOT REPORTED), 2 IN 1 D
     Dates: start: 20130917, end: 20131003
  4. PEGASYS [Suspect]
     Indication: HEPATITIS C
     Dosage: 180 MICROGRAM, 1 IN 1 WK
     Route: 058
     Dates: start: 20130705, end: 201308
  5. PEGASYS [Suspect]
     Dosage: 180 MICROGRAM, 1 IN 1 WK
     Route: 058
     Dates: start: 20130917, end: 20131003
  6. SIMVASTATIN [Concomitant]
     Dosage: 80 MG, QD
  7. ASPIRIN [Concomitant]
     Dosage: 81 MG, QD
  8. ATENOLOL [Concomitant]
     Dosage: 50 MG, QD
  9. AMLODIPINE [Concomitant]
     Dosage: 5 MG, QD
  10. FLEXERIL [Concomitant]
     Dosage: 10 MG, PRN
  11. VITAMINS (UNSPECIFIED) [Concomitant]

REACTIONS (3)
  - Impaired work ability [Unknown]
  - Nausea [Unknown]
  - Dizziness [Unknown]
